FAERS Safety Report 9753778 (Version 1)
Quarter: 2013Q4

REPORT INFORMATION
  Report Type: Spontaneous
  Country: US (occurrence: US)
  Receive Date: 20131213
  Receipt Date: 20131213
  Transmission Date: 20140711
  Serious: No
  Sender: FDA-Public Use
  Company Number: US-GILEAD-2010-0027047

PATIENT
  Sex: Female
  Weight: 47.17 kg

DRUGS (16)
  1. LETAIRIS [Suspect]
     Indication: PULMONARY ARTERIAL HYPERTENSION
     Route: 048
     Dates: start: 20080609, end: 20100111
  2. ASPIRIN [Concomitant]
  3. FUROSEMIDE [Concomitant]
  4. NADOLOL [Concomitant]
  5. NITROGLYCERIN [Concomitant]
  6. AZATHIOPRINE [Concomitant]
  7. HYDROCODONE/APAP [Concomitant]
  8. HYPOTEARS [Concomitant]
  9. LACRI-LUBE [Concomitant]
  10. ENULOSE [Concomitant]
  11. ACTONEL [Concomitant]
  12. NEXIUM [Concomitant]
  13. URSODIOL [Concomitant]
  14. HYDROXYZINE [Concomitant]
  15. PREMARIN [Concomitant]
  16. MAGIC MOUTHWASH [Concomitant]

REACTIONS (1)
  - Swelling [Not Recovered/Not Resolved]
